FAERS Safety Report 21047187 (Version 1)
Quarter: 2022Q3

REPORT INFORMATION
  Report Type: Spontaneous
  Country: US (occurrence: US)
  Receive Date: 20220706
  Receipt Date: 20220706
  Transmission Date: 20221026
  Serious: Yes (Other)
  Sender: FDA-Public Use
  Company Number: US-MYLANLABS-2022M1050135

PATIENT
  Age: 23 Year
  Sex: Male

DRUGS (7)
  1. RISPERIDONE [Suspect]
     Active Substance: RISPERIDONE
     Indication: Schizophrenia
     Dosage: 8 MILLIGRAM, QD
     Route: 065
  2. CLOZAPINE [Suspect]
     Active Substance: CLOZAPINE
     Indication: Schizophrenia
     Dosage: 125 MILLIGRAM (TITRATED GRADUALLY TO 125 MG OVER A 10-DAY PERIOD)
     Route: 065
  3. CLOZAPINE [Suspect]
     Active Substance: CLOZAPINE
     Dosage: RESTARTED AT 12.5 MILLIGRAM, QD (NIGHTLY)
     Route: 065
  4. CLOZAPINE [Suspect]
     Active Substance: CLOZAPINE
     Dosage: 12.5 MILLIGRAM, QW
     Route: 065
  5. CLOZAPINE [Suspect]
     Active Substance: CLOZAPINE
     Dosage: 325 MILLIGRAM
     Route: 065
  6. CLOZAPINE [Suspect]
     Active Substance: CLOZAPINE
     Dosage: 600 MILLIGRAM
     Route: 065
  7. OLANZAPINE [Concomitant]
     Active Substance: OLANZAPINE
     Indication: Schizophrenia
     Dosage: 30 MILLIGRAM, QD
     Route: 065

REACTIONS (3)
  - Drug ineffective [Unknown]
  - Hyperprolactinaemia [Unknown]
  - Myocarditis [Unknown]
